FAERS Safety Report 17202347 (Version 4)
Quarter: 2020Q1

REPORT INFORMATION
  Report Type: Spontaneous
  Country: US (occurrence: US)
  Receive Date: 20191226
  Receipt Date: 20200122
  Transmission Date: 20200409
  Serious: No
  Sender: FDA-Public Use
  Company Number: US-PFIZER INC-2019552310

PATIENT
  Age: 78 Year
  Sex: Female
  Weight: 89.36 kg

DRUGS (2)
  1. LATANOPROST. [Suspect]
     Active Substance: LATANOPROST
     Dosage: UNK
  2. LATANOPROST. [Suspect]
     Active Substance: LATANOPROST
     Indication: GLAUCOMA
     Dosage: 2 GTT, UNK (ONE DROP IN EACH EYE)

REACTIONS (4)
  - Extra dose administered [Unknown]
  - Eye disorder [Unknown]
  - Condition aggravated [Unknown]
  - Eye pain [Unknown]
